FAERS Safety Report 23069066 (Version 4)
Quarter: 2023Q4

REPORT INFORMATION
  Report Type: Spontaneous
  Country: CA (occurrence: CA)
  Receive Date: 20231016
  Receipt Date: 20231114
  Transmission Date: 20240110
  Serious: Yes (Other)
  Sender: FDA-Public Use
  Company Number: CA-PFIZER INC-202300322218

PATIENT
  Age: 61 Year
  Sex: Female

DRUGS (2)
  1. ABRILADA [Suspect]
     Active Substance: ADALIMUMAB-AFZB
     Indication: Uveitis
     Dosage: 1 DF, WEEK 0 80 MG AND THEN 40 MG EVERY OTHER WEEK
     Route: 058
     Dates: start: 20230823
  2. ABRILADA [Suspect]
     Active Substance: ADALIMUMAB-AFZB
     Dosage: 1 DF, WEEK 0 80 MG AND THEN 40 MG EVERY OTHER WEEK
     Route: 058
     Dates: start: 20231025

REACTIONS (2)
  - Eye disorder [Recovered/Resolved]
  - Alopecia [Not Recovered/Not Resolved]

NARRATIVE: CASE EVENT DATE: 20230101
